FAERS Safety Report 6067970-X (Version None)
Quarter: 2009Q1

REPORT INFORMATION
  Report Type: 
  Country: None (occurrence: None)
  Receive Date: 20090206
  Receipt Date: 20090203
  Transmission Date: 20090719
  Serious: Yes (Other)
  Sender: FDA-Public Use
  Company Number: ES-WYE-G03057009

PATIENT
  Age: 54 Year
  Sex: Female

DRUGS (2)
  1. TORISEL [Suspect]
     Indication: RENAL CELL CARCINOMA
     Route: 041
     Dates: start: 20081219, end: 20081219
  2. POLARAMINE [Concomitant]
     Indication: RENAL CELL CARCINOMA
     Route: 041
     Dates: start: 20081219, end: 20081219

REACTIONS (6)
  - BACK PAIN [None]
  - DIZZINESS [None]
  - ERYTHEMA [None]
  - HYPOTENSION [None]
  - MUSCULOSKELETAL STIFFNESS [None]
  - NAUSEA [None]
